FAERS Safety Report 9636044 (Version 2)
Quarter: 2013Q4

REPORT INFORMATION
  Report Type: Spontaneous
  Country: CA (occurrence: CA)
  Receive Date: 20131021
  Receipt Date: 20131021
  Transmission Date: 20140711
  Serious: Yes (Other)
  Sender: FDA-Public Use
  Company Number: CA-ROCHE-556807

PATIENT
  Age: 69 Year
  Sex: Female

DRUGS (7)
  1. TORADOL [Suspect]
     Indication: PROCEDURAL PAIN
     Dosage: AS REQUIRED
     Route: 048
     Dates: start: 20080222, end: 20080224
  2. TORADOL [Suspect]
     Route: 065
  3. SYMBICORT TURBUHALER [Concomitant]
     Route: 065
  4. SYNTHROID [Concomitant]
  5. TEVA-RABEPRAZOLE [Concomitant]
     Route: 065
  6. TRAVATAN Z [Concomitant]
     Route: 065
  7. VITAMIN A [Concomitant]

REACTIONS (10)
  - Hypersensitivity [Recovered/Resolved]
  - Erythema [Recovered/Resolved]
  - Lip swelling [Recovered/Resolved]
  - Oedema peripheral [Recovered/Resolved]
  - Swelling face [Recovered/Resolved]
  - Swollen tongue [Recovered/Resolved]
  - Dyspnoea [Recovered/Resolved]
  - Protrusion tongue [Recovered/Resolved]
  - Speech disorder [Recovered/Resolved]
  - Hypersensitivity [Recovered/Resolved]
